FAERS Safety Report 23652401 (Version 1)
Quarter: 2024Q1

REPORT INFORMATION
  Report Type: Spontaneous
  Country: US (occurrence: US)
  Receive Date: 20240320
  Receipt Date: 20240320
  Transmission Date: 20240410
  Serious: Yes (Other)
  Sender: FDA-Public Use
  Company Number: US-Accord-413857

PATIENT
  Age: 30 Year
  Sex: Female

DRUGS (7)
  1. FLUOROURACIL [Suspect]
     Active Substance: FLUOROURACIL
     Indication: Ovarian cancer stage III
     Dosage: FOUR TWO-WEEK CYCLES
  2. CETIRIZINE [Suspect]
     Active Substance: CETIRIZINE HYDROCHLORIDE
  3. MONTELUKAST [Suspect]
     Active Substance: MONTELUKAST SODIUM
     Route: 048
  4. METHYLPREDNISOLONE [Suspect]
     Active Substance: METHYLPREDNISOLONE
     Route: 042
  5. ONDANSETRON [Suspect]
     Active Substance: ONDANSETRON
     Route: 042
  6. DIPHENHYDRAMINE [Suspect]
     Active Substance: DIPHENHYDRAMINE
     Route: 042
  7. FAMOTIDINE [Suspect]
     Active Substance: FAMOTIDINE
     Route: 048

REACTIONS (5)
  - Nausea [Recovered/Resolved]
  - Maternal exposure during pregnancy [Unknown]
  - Dyspnoea [Recovered/Resolved]
  - Off label use [Unknown]
  - Rash pruritic [Recovered/Resolved]
